FAERS Safety Report 5807340-X (Version None)
Quarter: 2008Q3

REPORT INFORMATION
  Report Type: 
  Country: None (occurrence: None)
  Receive Date: 20080709
  Receipt Date: 20080709
  Transmission Date: 20090109
  Serious: Yes (Life-Threatening, Hospitalization, Disabling, Other)
  Sender: FDA-Public Use
  Company Number: None

PATIENT
  Age: 63 Year
  Sex: Male
  Weight: 88.905 kg

DRUGS (2)
  1. CIPROFLOXACIN [Suspect]
     Indication: CYSTITIS
     Dosage: 750 MG 2 X DAY PO
     Route: 048
     Dates: start: 20080421, end: 20080430
  2. CEFDINIR [Suspect]
     Indication: CYSTITIS
     Dosage: 300MG 2 X DAY PO
     Route: 048
     Dates: start: 20080424, end: 20080430

REACTIONS (2)
  - GUILLAIN-BARRE SYNDROME [None]
  - NERVE INJURY [None]
